FAERS Safety Report 17727308 (Version 1)
Quarter: 2020Q2

REPORT INFORMATION
  Report Type: Spontaneous
  Country: AE (occurrence: AE)
  Receive Date: 20200430
  Receipt Date: 20200430
  Transmission Date: 20200714
  Serious: Yes (Other)
  Sender: FDA-Public Use
  Company Number: AE-RECKITT BENCKISER HEALTHCARE INT LIMITED-RB-85942-2020

PATIENT
  Age: 16 Year
  Sex: Male

DRUGS (1)
  1. DETTOL FIRST AID ANTISEPTIC [Suspect]
     Active Substance: CHLOROXYLENOL
     Indication: SUICIDE ATTEMPT
     Dosage: DRANK 200 ML AT UNKNOWN FREQUENCY
     Route: 048

REACTIONS (4)
  - Suicide attempt [Unknown]
  - Syncope [Unknown]
  - Abdominal pain upper [Unknown]
  - Intentional product misuse [Unknown]
